FAERS Safety Report 4989822-6 (Version None)
Quarter: 2006Q2

REPORT INFORMATION
  Report Type: 
  Country: None (occurrence: None)
  Receive Date: 20060428
  Receipt Date: 20060414
  Transmission Date: 20061013
  Serious: Yes (Other)
  Sender: FDA-Public Use
  Company Number: MEDI-0004490

PATIENT
  Age: 19 Month
  Sex: Male

DRUGS (6)
  1. SYNAGIS [Suspect]
     Indication: ANTIVIRAL PROPHYLAXIS
     Dosage: SEE IMAGE
     Route: 030
     Dates: start: 20031213, end: 20040223
  2. FERRIC PYROPHOSPHATE (FERRIC PYROPHOSPHATE) [Concomitant]
  3. SODIUM CROMOGLICATE (CROMOGLICATE SODIUM) [Concomitant]
  4. BUFEXAMAC (BUFEXAMAC) [Concomitant]
  5. L-CARBOCISTEINE (CARBOCISTEINE LYSINE) [Concomitant]
  6. CHLORPHENIRAMINE MALEATE (CHLORPHENAINE MALEATE) [Concomitant]

REACTIONS (2)
  - ASTHMA [None]
  - CONDITION AGGRAVATED [None]
